FAERS Safety Report 7373027-8 (Version None)
Quarter: 2011Q1

REPORT INFORMATION
  Report Type: 
  Country: None (occurrence: None)
  Receive Date: 20110324
  Receipt Date: 20110321
  Transmission Date: 20110831
  Serious: Yes (Hospitalization)
  Sender: FDA-Public Use
  Company Number: CA-ABBOTT-11P-028-0695080-00

PATIENT
  Sex: Female
  Weight: 47.67 kg

DRUGS (8)
  1. PROCET 30 [Concomitant]
     Indication: PAIN
     Dosage: 6/DAY
     Route: 048
     Dates: start: 19950101
  2. AMLODIPINE [Concomitant]
     Indication: BLOOD PRESSURE
     Dosage: 5MG ONCE DAILY
     Route: 048
     Dates: start: 20090101
  3. GRAVOL TAB [Concomitant]
     Indication: NAUSEA
     Dosage: 50MG AS NEEDED
     Route: 048
  4. RATIO FENTANYL [Concomitant]
     Indication: PAIN
     Dosage: 75MCG EVERY 3 DAYS
     Route: 061
     Dates: start: 20090101
  5. RATIO VENLAFAXINE [Concomitant]
     Indication: ANTIDEPRESSANT THERAPY
     Dosage: 75MG TWICE DAILY
     Route: 048
     Dates: start: 20080101
  6. HYDRO CHLOR [Concomitant]
     Indication: BLOOD PRESSURE
     Dosage: 25MG ONCE DAILY
     Route: 048
     Dates: start: 20090101
  7. NEXIUM [Concomitant]
     Indication: GASTRIC DISORDER
     Dosage: DAILY
     Route: 048
     Dates: start: 20090101
  8. HUMIRA [Suspect]
     Indication: CROHN'S DISEASE
     Route: 058
     Dates: start: 20050101

REACTIONS (5)
  - CROHN'S DISEASE [None]
  - ABDOMINAL PAIN [None]
  - ABDOMINAL ADHESIONS [None]
  - INTESTINAL OBSTRUCTION [None]
  - ADHESION [None]
